FAERS Safety Report 18379291 (Version 2)
Quarter: 2020Q4

REPORT INFORMATION
  Report Type: Spontaneous
  Country: RU (occurrence: RU)
  Receive Date: 20201013
  Receipt Date: 20201218
  Transmission Date: 20210114
  Serious: Yes (Hospitalization)
  Sender: FDA-Public Use
  Company Number: RU-009507513-2010RUS003504

PATIENT
  Age: 32 Month

DRUGS (1)
  1. NASONEX [Suspect]
     Active Substance: MOMETASONE FUROATE
     Indication: ADENOIDAL DISORDER
     Dosage: 2 DOSE (1 DOSE IN EACH NASAL PASSAGE) ONCE A DAY AT NIGHT (HS)
     Route: 045

REACTIONS (13)
  - Basophil count abnormal [Recovered/Resolved]
  - Cyanosis [Recovering/Resolving]
  - Swelling face [Recovering/Resolving]
  - Monocytopenia [Recovered/Resolved]
  - Somnolence [Recovering/Resolving]
  - Asthenia [Recovering/Resolving]
  - Leukocytosis [Recovered/Resolved]
  - Neutrophilia [Recovered/Resolved]
  - Rash [Recovering/Resolving]
  - Lethargy [Recovering/Resolving]
  - Product use in unapproved indication [Unknown]
  - Pallor [Recovering/Resolving]
  - Lymphopenia [Recovered/Resolved]
